FAERS Safety Report 7481803-6 (Version None)
Quarter: 2011Q2

REPORT INFORMATION
  Report Type: 
  Country: None (occurrence: None)
  Receive Date: 20110516
  Receipt Date: 20110502
  Transmission Date: 20111010
  Serious: Yes (Death, Other)
  Sender: FDA-Public Use
  Company Number: US-ELI_LILLY_AND_COMPANY-US201101000641

PATIENT
  Sex: Female
  Weight: 43.537 kg

DRUGS (9)
  1. METOPROLOL SUCCINATE [Concomitant]
  2. THYROXINE [Concomitant]
  3. CALCIUM [Concomitant]
  4. FORTEO [Suspect]
     Indication: OSTEOPOROSIS
     Dosage: 20 UG, DAILY (1/D)
     Route: 058
     Dates: start: 20101118
  5. ASPIRIN [Concomitant]
  6. FORTEO [Suspect]
     Dosage: 20 UG, DAILY (1/D)
     Route: 058
     Dates: end: 20110128
  7. ANAPRIL [Concomitant]
  8. LOVAZA [Concomitant]
  9. MULTI-VITAMIN [Concomitant]

REACTIONS (3)
  - LUNG CARCINOMA CELL TYPE UNSPECIFIED RECURRENT [None]
  - INFLUENZA [None]
  - METASTASES TO BONE [None]
